FAERS Safety Report 14541114 (Version 1)
Quarter: 2018Q1

REPORT INFORMATION
  Report Type: Spontaneous
  Country: FR (occurrence: FR)
  Receive Date: 20180216
  Receipt Date: 20180216
  Transmission Date: 20180509
  Serious: Yes (Other)
  Sender: FDA-Public Use
  Company Number: FR-OTSUKA-DJ20110308

PATIENT
  Sex: Female
  Weight: 46 kg

DRUGS (8)
  1. ABILIFY [Suspect]
     Active Substance: ARIPIPRAZOLE
     Indication: PSYCHOTIC DISORDER
  2. SEROPLEX [Suspect]
     Active Substance: ESCITALOPRAM OXALATE
     Dosage: UNK
     Route: 048
     Dates: start: 20101007
  3. XANAX [Concomitant]
     Active Substance: ALPRAZOLAM
     Indication: ANXIETY
     Dosage: 1 MG, QD (BEFORE JUN10  ALSO :5MG  DOSAGEG:1-3 TABS)
     Route: 048
     Dates: start: 201003, end: 20101007
  4. SEROPLEX [Suspect]
     Active Substance: ESCITALOPRAM OXALATE
     Indication: DEPRESSION
     Dosage: UNK
     Route: 048
     Dates: start: 201003
  5. LEXAPRO [Suspect]
     Active Substance: ESCITALOPRAM OXALATE
     Indication: DEPRESSION
     Dosage: ALSO 20MG/DAY  REDUCED TO 10MG/DAY FROM 07OCT10
     Route: 048
     Dates: start: 201003
  6. ABILIFY [Suspect]
     Active Substance: ARIPIPRAZOLE
     Indication: SCHIZOPHRENIA
     Dosage: 10 MG, UNK
     Route: 048
     Dates: start: 20100901, end: 20101007
  7. LEXAPRO [Suspect]
     Active Substance: ESCITALOPRAM OXALATE
     Indication: SUICIDE ATTEMPT
  8. ABILIFY [Suspect]
     Active Substance: ARIPIPRAZOLE
     Indication: BORDERLINE PERSONALITY DISORDER

REACTIONS (7)
  - Initial insomnia [Recovered/Resolved]
  - Disinhibition [Recovered/Resolved]
  - Hypomania [Recovered/Resolved]
  - Abnormal behaviour [Unknown]
  - Logorrhoea [Unknown]
  - Sexually inappropriate behaviour [Recovered/Resolved]
  - Libido increased [Unknown]

NARRATIVE: CASE EVENT DATE: 2010
